FAERS Safety Report 21057236 (Version 1)
Quarter: 2022Q3

REPORT INFORMATION
  Report Type: Spontaneous
  Country: US (occurrence: US)
  Receive Date: 20220708
  Receipt Date: 20220708
  Transmission Date: 20221027
  Serious: Yes (Death, Other)
  Sender: FDA-Public Use
  Company Number: US-AMGEN-USASP2022112975

PATIENT

DRUGS (16)
  1. BEVACIZUMAB [Suspect]
     Active Substance: BEVACIZUMAB
     Indication: Product used for unknown indication
     Dosage: UNK
     Route: 065
  2. TRASTUZUMAB [Suspect]
     Active Substance: TRASTUZUMAB
     Indication: Product used for unknown indication
     Route: 065
  3. CARBOPLATIN [Concomitant]
     Active Substance: CARBOPLATIN
  4. PEMBROLIZUMAB [Concomitant]
     Active Substance: PEMBROLIZUMAB
  5. PACLITAXEL [Concomitant]
     Active Substance: PACLITAXEL
  6. PEMETREXED [Concomitant]
     Active Substance: PEMETREXED
  7. CISPLATIN [Concomitant]
     Active Substance: CISPLATIN
  8. CYCLOPHOSPHAMIDE [Concomitant]
     Active Substance: CYCLOPHOSPHAMIDE
  9. TRAMETINIB [Concomitant]
     Active Substance: TRAMETINIB
  10. ERIBULIN [Concomitant]
     Active Substance: ERIBULIN
  11. DOXORUBICIN [Concomitant]
     Active Substance: DOXORUBICIN
  12. PERTUZUMAB [Concomitant]
     Active Substance: PERTUZUMAB
  13. ETOPOSIDE [Concomitant]
     Active Substance: ETOPOSIDE
  14. DABRAFENIB [Concomitant]
     Active Substance: DABRAFENIB
  15. GEMCITABINE [Concomitant]
     Active Substance: GEMCITABINE
  16. LAPATINIB [Concomitant]
     Active Substance: LAPATINIB

REACTIONS (8)
  - Small cell lung cancer metastatic [Fatal]
  - Ovarian cancer metastatic [Fatal]
  - Metastatic malignant melanoma [Fatal]
  - Breast cancer metastatic [Fatal]
  - Non-small cell lung cancer metastatic [Fatal]
  - Metastases to central nervous system [Fatal]
  - Death [Fatal]
  - Radiation necrosis [Unknown]
